FAERS Safety Report 9440605 (Version 3)
Quarter: 2016Q1

REPORT INFORMATION
  Report Type: Report from Study
  Country: US (occurrence: US)
  Receive Date: 20130805
  Receipt Date: 20160224
  Transmission Date: 20160526
  Serious: Yes (Hospitalization, Other)
  Sender: FDA-Public Use
  Company Number: US-ROCHE-1255656

PATIENT
  Sex: Female

DRUGS (3)
  1. XELODA [Suspect]
     Active Substance: CAPECITABINE
     Indication: CERVIX CARCINOMA
     Route: 048
  2. XELODA [Suspect]
     Active Substance: CAPECITABINE
     Indication: SQUAMOUS CELL CARCINOMA
     Dosage: ONE WEEK ON, ONE WEEK OFF
     Route: 048
     Dates: start: 2013
  3. GEMZAR [Concomitant]
     Active Substance: GEMCITABINE HYDROCHLORIDE
     Indication: SQUAMOUS CELL CARCINOMA
     Route: 042

REACTIONS (6)
  - Intestinal obstruction [Recovering/Resolving]
  - Gastric cancer [Recovering/Resolving]
  - Necrosis [Unknown]
  - Pain [Unknown]
  - No therapeutic response [Unknown]
  - Disease progression [Unknown]
